FAERS Safety Report 8167221-6 (Version None)
Quarter: 2012Q1

REPORT INFORMATION
  Report Type: 
  Country: None (occurrence: None)
  Receive Date: 20120103
  Receipt Date: 20111104
  Transmission Date: 20120608
  Serious: Yes (Hospitalization)
  Sender: FDA-Public Use
  Company Number: AE-2011-003078

PATIENT
  Age: 43 Year
  Sex: Male
  Weight: 87.9978 kg

DRUGS (9)
  1. COPEGUS [Concomitant]
  2. SPIRONOLACTONE [Concomitant]
  3. LASIX (LASIX [Concomitant]
  4. LORAZEPAM [Concomitant]
  5. PEGASYS [Concomitant]
  6. PROPRANOLOL [Concomitant]
  7. INCIVEK [Suspect]
     Dosage: 2250 MG (750 MG, 3 IN 1 D), ORAL
     Route: 048
     Dates: start: 20110908, end: 20111028
  8. LACTULOSE [Concomitant]
  9. PROMETHAZINE [Concomitant]

REACTIONS (1)
  - THROMBOCYTOPENIA [None]
